FAERS Safety Report 7046498-4 (Version None)
Quarter: 2010Q4

REPORT INFORMATION
  Report Type: 
  Country: None (occurrence: None)
  Receive Date: 20101014
  Receipt Date: 20101004
  Transmission Date: 20110411
  Serious: Yes (Other)
  Sender: FDA-Public Use
  Company Number: PHHY2009NZ16830

PATIENT
  Sex: Female

DRUGS (8)
  1. ACLASTA [Suspect]
     Indication: OSTEITIS DEFORMANS
     Dosage: 5 MG
     Dates: start: 20090421
  2. ACLASTA [Suspect]
     Indication: OSTEOPOROSIS
  3. ACLASTA [Suspect]
     Indication: OSTEOPOROTIC FRACTURE
  4. WARFARIN SODIUM [Concomitant]
     Dosage: UNK
  5. CALCIUM [Concomitant]
     Dosage: 1.5 G/DAY
  6. DIGOXIN [Concomitant]
     Dosage: 0.25 MG/DAY
  7. CALCIFEROL [Concomitant]
     Dosage: 1.75 MG 3 MONTHLY
  8. BENDROFLUAZIDE [Concomitant]
     Dosage: 2.5 MG/DAY

REACTIONS (9)
  - ARTHRALGIA [None]
  - BURNING SENSATION [None]
  - HEADACHE [None]
  - INFLUENZA LIKE ILLNESS [None]
  - NAUSEA [None]
  - NERVE INJURY [None]
  - PAIN [None]
  - PARAESTHESIA [None]
  - RETCHING [None]
